FAERS Safety Report 20989815 (Version 2)
Quarter: 2022Q2

REPORT INFORMATION
  Report Type: Spontaneous
  Country: US (occurrence: US)
  Receive Date: 20220621
  Receipt Date: 20220623
  Transmission Date: 20220720
  Serious: Yes (Other)
  Sender: FDA-Public Use
  Company Number: US-PURDUE-USA-2021-0289612

PATIENT
  Sex: Male

DRUGS (2)
  1. OXYCONTIN [Suspect]
     Active Substance: OXYCODONE HYDROCHLORIDE
     Indication: Foot operation
     Dosage: UNKNOWN
     Route: 048
     Dates: start: 2007, end: 2021
  2. OXYCODONE HYDROCHLORIDE [Suspect]
     Active Substance: OXYCODONE HYDROCHLORIDE
     Indication: Foot operation
     Dosage: UNKNOWN
     Route: 065
     Dates: start: 2007, end: 2021

REACTIONS (3)
  - Drug dependence [Unknown]
  - Weight decreased [Unknown]
  - Illness [Unknown]
